FAERS Safety Report 10248143 (Version 1)
Quarter: 2014Q2

REPORT INFORMATION
  Report Type: Spontaneous
  Country: TR (occurrence: TR)
  Receive Date: 20140619
  Receipt Date: 20140619
  Transmission Date: 20141212
  Serious: Yes (Other)
  Sender: FDA-Public Use
  Company Number: TR-ROXANE LABORATORIES, INC.-2014-RO-00933RO

PATIENT
  Age: 22 Month
  Sex: Male

DRUGS (4)
  1. CLARITHROMYCIN [Suspect]
     Indication: OTITIS MEDIA ACUTE
     Route: 065
  2. CEFIXIME [Suspect]
     Indication: OTITIS MEDIA ACUTE
     Route: 065
  3. AMOXICILLIN [Concomitant]
     Indication: HYDRONEPHROSIS
     Route: 065
  4. AMOXICILLIN [Concomitant]
     Indication: URINARY TRACT INFECTION

REACTIONS (1)
  - Drug eruption [Recovered/Resolved]
